FAERS Safety Report 4978466-8 (Version None)
Quarter: 2006Q1

REPORT INFORMATION
  Report Type: 
  Country: None (occurrence: None)
  Receive Date: 20060227
  Receipt Date: 20050810
  Transmission Date: 20060701
  Serious: Yes (Hospitalization)
  Sender: FDA-Public Use
  Company Number: WAES 0508USA01911

PATIENT
  Age: 55 Year
  Sex: Female

DRUGS (10)
  1. .. [Concomitant]
  2. .. [Concomitant]
  3. ZOCOR [Suspect]
     Dosage: 80 MG/DAILY/PO
     Route: 048
     Dates: start: 20050214, end: 20050805
  4. .. [Concomitant]
  5. . [Concomitant]
  6. DIOVAN [Concomitant]
  7. NORVASC [Concomitant]
  8. GEMFIBROZIL [Concomitant]
  9. INSULIN [Concomitant]
  10. PREDNISONE TAB [Concomitant]

REACTIONS (1)
  - RHABDOMYOLYSIS [None]
